FAERS Safety Report 25055722 (Version 1)
Quarter: 2025Q1

REPORT INFORMATION
  Report Type: Spontaneous
  Country: US (occurrence: US)
  Receive Date: 20250309
  Receipt Date: 20250309
  Transmission Date: 20250409
  Serious: No
  Sender: SANOFI AVENTIS
  Company Number: US-SA-2024SA267868

PATIENT
  Age: 6 Year
  Sex: Male

DRUGS (6)
  1. DUPIXENT [Suspect]
     Active Substance: DUPILUMAB
     Indication: Asthma
     Dosage: 300 MG Q4W
     Route: 058
     Dates: start: 20240808
  2. FLONASE [Concomitant]
     Active Substance: FLUTICASONE PROPIONATE
  3. MONTELUKAST [Concomitant]
     Active Substance: MONTELUKAST
  4. SINGULAIR [Concomitant]
     Active Substance: MONTELUKAST SODIUM
  5. XYZAL [Concomitant]
     Active Substance: LEVOCETIRIZINE DIHYDROCHLORIDE
  6. ADVAIR HFA [Concomitant]
     Active Substance: FLUTICASONE PROPIONATE\SALMETEROL XINAFOATE

REACTIONS (2)
  - Impaired quality of life [Unknown]
  - Product dose omission in error [Unknown]

NARRATIVE: CASE EVENT DATE: 20240101
